APPROVED DRUG PRODUCT: KETAMINE HYDROCHLORIDE
Active Ingredient: KETAMINE HYDROCHLORIDE
Strength: EQ 10MG BASE/ML
Dosage Form/Route: INJECTABLE;INJECTION
Application: A217858 | Product #001 | TE Code: AP
Applicant: CAPLIN STERILES LTD
Approved: Aug 7, 2025 | RLD: No | RS: No | Type: RX